FAERS Safety Report 9055209 (Version 2)
Quarter: 2013Q1

REPORT INFORMATION
  Report Type: Spontaneous
  Country: US (occurrence: US)
  Receive Date: 20130206
  Receipt Date: 20130211
  Transmission Date: 20140127
  Serious: No
  Sender: FDA-Public Use
  Company Number: US-009507513-1302USA002118

PATIENT
  Age: 61 None
  Sex: Female
  Weight: 72.56 kg

DRUGS (5)
  1. MIRALAX [Suspect]
     Indication: CONSTIPATION
     Dosage: 17 G, QD
     Route: 048
     Dates: start: 20130106, end: 20130109
  2. MIRALAX [Suspect]
     Indication: MEDICAL OBSERVATION
  3. CELEBREX [Concomitant]
     Indication: PAIN
     Dosage: UNK, UNKNOWN
  4. PERCOCET [Concomitant]
     Indication: PAIN
     Dosage: UNK, UNKNOWN
  5. ATENOLOL [Concomitant]
     Indication: HYPERTENSION
     Dosage: UNK, UNKNOWN

REACTIONS (3)
  - Local swelling [Unknown]
  - Pruritus [Unknown]
  - Abdominal pain [Recovered/Resolved]
